FAERS Safety Report 8600355-8 (Version None)
Quarter: 2012Q3

REPORT INFORMATION
  Report Type: 
  Country: None (occurrence: None)
  Receive Date: 20120817
  Receipt Date: 20120814
  Transmission Date: 20120928
  Serious: No
  Sender: FDA-Public Use
  Company Number: US-PFIZER INC-2012199265

PATIENT
  Age: 75 Year
  Sex: Female

DRUGS (9)
  1. BISACODYL [Concomitant]
     Dosage: UNK
  2. COUMADIN [Concomitant]
     Dosage: UNK
  3. MIRTAZAPINE [Concomitant]
     Dosage: UNK
  4. DILTIAZEM [Concomitant]
     Dosage: UNK
  5. SUTENT [Suspect]
     Indication: RENAL CANCER
     Dosage: 50 MG, 1X/DAY
     Route: 048
  6. VICODIN [Concomitant]
     Dosage: UNK
  7. METOPROLOL [Concomitant]
     Dosage: UNK
  8. SENNA [Concomitant]
     Dosage: UNK
  9. MIRALAX [Concomitant]
     Dosage: UNK

REACTIONS (2)
  - FATIGUE [None]
  - NASOPHARYNGITIS [None]
